FAERS Safety Report 16270456 (Version 4)
Quarter: 2019Q4

REPORT INFORMATION
  Report Type: Spontaneous
  Country: US (occurrence: US)
  Receive Date: 20190503
  Receipt Date: 20191107
  Transmission Date: 20200122
  Serious: Yes (Hospitalization, Other)
  Sender: FDA-Public Use
  Company Number: US-PFIZER INC-2019188601

PATIENT
  Age: 32 Year
  Sex: Male

DRUGS (34)
  1. CIALIS [Suspect]
     Active Substance: TADALAFIL
     Dosage: UNK, (20 SAMPLES)
     Route: 048
     Dates: start: 200910
  2. DICLOFENAC [Concomitant]
     Active Substance: DICLOFENAC
     Indication: ACTINIC KERATOSIS
     Dosage: UNK
     Route: 061
     Dates: start: 20160719
  3. HYDROXYZINE PAMOATE. [Concomitant]
     Active Substance: HYDROXYZINE PAMOATE
     Indication: ANXIETY
     Dosage: UNK
     Dates: start: 20120127
  4. SILDENAFIL. [Concomitant]
     Active Substance: SILDENAFIL
     Indication: ERECTILE DYSFUNCTION
     Dosage: UNK
     Dates: start: 20160331
  5. AUGMENTIN [Concomitant]
     Active Substance: AMOXICILLIN\CLAVULANATE POTASSIUM
     Indication: ANTIBIOTIC THERAPY
     Dosage: UNK
  6. DEPAKOTE [Concomitant]
     Active Substance: DIVALPROEX SODIUM
     Indication: SEIZURE
     Dosage: UNK
     Dates: start: 20120306
  7. DIVALPROEX [Concomitant]
     Active Substance: DIVALPROEX SODIUM
     Indication: SEIZURE
     Dosage: UNK
     Dates: start: 20120306
  8. SEROQUEL [Concomitant]
     Active Substance: QUETIAPINE FUMARATE
     Indication: MENTAL DISORDER
     Dosage: UNK
     Dates: start: 20120405
  9. ABILIFY [Concomitant]
     Active Substance: ARIPIPRAZOLE
     Indication: MENTAL DISORDER
     Dosage: UNK
     Dates: start: 20140808
  10. LORAZEPAM. [Concomitant]
     Active Substance: LORAZEPAM
     Indication: SEDATIVE THERAPY
     Dosage: UNK
     Dates: start: 20110902
  11. OXYCODONE HYDROCHLORIDE. [Concomitant]
     Active Substance: OXYCODONE HYDROCHLORIDE
     Indication: PAIN
     Dosage: UNK
     Dates: start: 20090916
  12. VIAGRA [Suspect]
     Active Substance: SILDENAFIL CITRATE
     Indication: ERECTILE DYSFUNCTION
     Dosage: 100 MG, THREE TIME A WEEK
     Route: 048
     Dates: start: 20150210, end: 20171025
  13. AUGMENTIN [Concomitant]
     Active Substance: AMOXICILLIN\CLAVULANATE POTASSIUM
     Indication: BLOOD PRESSURE ABNORMAL
     Dosage: UNK
     Dates: start: 20160806
  14. BENZONATATE. [Concomitant]
     Active Substance: BENZONATATE
     Indication: COUGH
     Dosage: UNK
     Dates: start: 20160806
  15. KLONOPIN [Concomitant]
     Active Substance: CLONAZEPAM
     Indication: SEDATIVE THERAPY
     Dosage: UNK
     Dates: start: 20130919
  16. LAMICTAL [Concomitant]
     Active Substance: LAMOTRIGINE
     Indication: AFFECTIVE DISORDER
     Dosage: UNK
     Dates: start: 20170807
  17. COGENTIN [Concomitant]
     Active Substance: BENZTROPINE MESYLATE
     Indication: TREMOR
     Dosage: UNK
     Dates: start: 20120127
  18. LATUDA [Concomitant]
     Active Substance: LURASIDONE HYDROCHLORIDE
     Indication: MENTAL DISORDER
     Dosage: UNK
     Dates: start: 20140827
  19. NEOMYCIN POLY HC [Concomitant]
     Indication: EAR DISORDER
     Dosage: UNK
     Route: 001
     Dates: start: 20150713
  20. PREDNISONE. [Concomitant]
     Active Substance: PREDNISONE
     Indication: STEROID THERAPY
     Dosage: UNK
     Dates: start: 20160806
  21. RISPERDAL [Concomitant]
     Active Substance: RISPERIDONE
     Indication: MENTAL DISORDER
     Dosage: UNK
     Dates: start: 20120127
  22. METOPROLOL. [Concomitant]
     Active Substance: METOPROLOL
     Dosage: UNK
     Dates: start: 20150725
  23. ADDERALL [Concomitant]
     Active Substance: AMPHETAMINE ASPARTATE\AMPHETAMINE SULFATE\DEXTROAMPHETAMINE SACCHARATE\DEXTROAMPHETAMINE SULFATE
     Dosage: UNK
     Dates: start: 20100106
  24. PERPHENAZINE. [Concomitant]
     Active Substance: PERPHENAZINE
     Indication: MENTAL DISORDER
     Dosage: UNK
     Dates: start: 20120215
  25. WELLBUTRIN [Concomitant]
     Active Substance: BUPROPION HYDROCHLORIDE
     Indication: DEPRESSION
     Dosage: UNK
     Dates: start: 20140611
  26. XANAX [Concomitant]
     Active Substance: ALPRAZOLAM
     Indication: ANXIETY
     Dosage: UNK
     Dates: start: 20090916
  27. ZOLOFT [Concomitant]
     Active Substance: SERTRALINE HYDROCHLORIDE
     Indication: ANTIDEPRESSANT THERAPY
     Dosage: UNK
     Dates: start: 20120128
  28. CIALIS [Suspect]
     Active Substance: TADALAFIL
     Indication: ERECTILE DYSFUNCTION
     Dosage: 20 MG, 3 TIMES A WEEK
     Route: 048
     Dates: start: 20090916, end: 20151110
  29. FENOFIBRATE. [Concomitant]
     Active Substance: FENOFIBRATE
     Indication: BLOOD CHOLESTEROL ABNORMAL
     Dosage: UNK
     Dates: start: 20160927
  30. PRILOX [Concomitant]
     Indication: MAINTENANCE OF ANAESTHESIA
     Dosage: UNK
     Dates: start: 20170630
  31. NEO POLY DEX [Concomitant]
     Indication: EYE DISORDER
     Dosage: UNK
     Route: 047
     Dates: start: 20150612
  32. TRAZODONE [Concomitant]
     Active Substance: TRAZODONE HYDROCHLORIDE
     Indication: ANTIDEPRESSANT THERAPY
     Dosage: UNK
     Dates: start: 20120214
  33. VENTOLIN HFA [Concomitant]
     Active Substance: ALBUTEROL SULFATE
     Indication: BRONCHIAL DISORDER
     Dosage: UNK
     Dates: start: 20160806
  34. VICODIN [Concomitant]
     Active Substance: ACETAMINOPHEN\HYDROCODONE BITARTRATE
     Indication: PAIN
     Dosage: UNK
     Dates: start: 20151207

REACTIONS (4)
  - Depression [Unknown]
  - Anxiety [Unknown]
  - Post-traumatic stress disorder [Unknown]
  - Malignant melanoma [Unknown]

NARRATIVE: CASE EVENT DATE: 20151107
